FAERS Safety Report 8231032-3 (Version None)
Quarter: 2012Q1

REPORT INFORMATION
  Report Type: 
  Country: None (occurrence: None)
  Receive Date: 20120323
  Receipt Date: 20120316
  Transmission Date: 20120608
  Serious: Yes (Hospitalization, Other)
  Sender: FDA-Public Use
  Company Number: US-BAYER-2012-026538

PATIENT
  Sex: Female

DRUGS (1)
  1. YAZ [Suspect]
     Indication: PRODUCT USED FOR UNKNOWN INDICATION
     Dosage: UNK
     Dates: start: 20081101, end: 20090417

REACTIONS (8)
  - HEPATIC FUNCTION ABNORMAL [None]
  - GALLBLADDER DISORDER [None]
  - PAIN [None]
  - ANHEDONIA [None]
  - INJURY [None]
  - DEFORMITY [None]
  - ANXIETY [None]
  - DISABILITY [None]
